FAERS Safety Report 7638738-5 (Version None)
Quarter: 2011Q3

REPORT INFORMATION
  Report Type: 
  Country: None (occurrence: None)
  Receive Date: 20110727
  Receipt Date: 20110720
  Transmission Date: 20111222
  Serious: Yes (Hospitalization)
  Sender: FDA-Public Use
  Company Number: FR-ABBOTT-11P-056-0840705-00

PATIENT
  Age: 41 Year
  Sex: Male

DRUGS (3)
  1. HUMIRA [Suspect]
     Dates: start: 20100901, end: 20110301
  2. HUMIRA [Suspect]
     Indication: CROHN'S DISEASE
     Dates: start: 20060801
  3. HUMIRA [Suspect]
     Dosage: LOW DOSE
     Dates: start: 20100201, end: 20100901

REACTIONS (3)
  - SARCOIDOSIS [None]
  - PSORIASIS [None]
  - DRUG INEFFECTIVE [None]
